FAERS Safety Report 17041389 (Version 1)
Quarter: 2019Q4

REPORT INFORMATION
  Report Type: Spontaneous
  Country: GB (occurrence: GB)
  Receive Date: 20191118
  Receipt Date: 20191118
  Transmission Date: 20200122
  Serious: Yes (Other)
  Sender: FDA-Public Use
  Company Number: GB-TEVA-2019-GB-1137311

PATIENT
  Age: 17 Year
  Sex: Female
  Weight: 48 kg

DRUGS (10)
  1. BACLOFEN. [Concomitant]
     Active Substance: BACLOFEN
  2. METRONIDAZOLE. [Suspect]
     Active Substance: METRONIDAZOLE
     Indication: PERICORONITIS
     Dosage: 400 MG
     Route: 048
     Dates: start: 20170913, end: 20170920
  3. DESOGESTREL [Concomitant]
     Active Substance: DESOGESTREL
  4. AMOXICILLIN. [Concomitant]
     Active Substance: AMOXICILLIN
  5. BOOTS PARACETAMOL [Concomitant]
  6. CODEINE PHOSPHATE [Concomitant]
     Active Substance: CODEINE PHOSPHATE
  7. CLENIL MODULITE [Concomitant]
     Active Substance: BECLOMETHASONE DIPROPIONATE
  8. PROPRANOLOL [Concomitant]
     Active Substance: PROPRANOLOL HYDROCHLORIDE
  9. IVABRADINE [Concomitant]
     Active Substance: IVABRADINE
  10. MALARONE [Concomitant]
     Active Substance: ATOVAQUONE\PROGUANIL HYDROCHLORIDE

REACTIONS (1)
  - Hallucination, visual [Recovered/Resolved]

NARRATIVE: CASE EVENT DATE: 20170913
